FAERS Safety Report 5012764-7 (Version None)
Quarter: 2006Q2

REPORT INFORMATION
  Report Type: 
  Country: None (occurrence: None)
  Receive Date: 20060530
  Receipt Date: 20060208
  Transmission Date: 20061013
  Serious: No
  Sender: FDA-Public Use
  Company Number: US-BRISTOL-MYERS SQUIBB COMPANY-13275342

PATIENT
  Age: 31 Year
  Sex: Male
  Weight: 82 kg

DRUGS (7)
  1. ERBITUX [Suspect]
     Indication: COLON CANCER METASTATIC
     Dates: start: 20051101
  2. BENADRYL [Concomitant]
     Indication: PREMEDICATION
     Route: 042
  3. DECADRON SRC [Concomitant]
     Indication: PREMEDICATION
     Route: 042
  4. ALOXI [Concomitant]
     Indication: PREMEDICATION
     Route: 042
  5. AVASTIN [Concomitant]
  6. FLUOROURACIL [Concomitant]
  7. LEUCOVORIN CALCIUM [Concomitant]

REACTIONS (1)
  - DERMATITIS ACNEIFORM [None]
